FAERS Safety Report 5339557-5 (Version None)
Quarter: 2007Q2

REPORT INFORMATION
  Report Type: 
  Country: None (occurrence: None)
  Receive Date: 20070405
  Receipt Date: 20061121
  Transmission Date: 20071010
  Serious: No
  Sender: FDA-Public Use
  Company Number: US200611004030

PATIENT
  Age: 71 Year
  Sex: Female

DRUGS (4)
  1. CYMBALTA [Suspect]
     Indication: DEPRESSION
     Dosage: 60 MG, ORAL
     Route: 048
     Dates: start: 20060901
  2. DIOVAN [Concomitant]
  3. NIFEDICAL (NIFEDIPINE) [Concomitant]
  4. GLIPIZIDE [Concomitant]

REACTIONS (2)
  - DEPRESSED MOOD [None]
  - DRUG EFFECT DECREASED [None]
